FAERS Safety Report 7074808-0 (Version None)
Quarter: 2010Q4

REPORT INFORMATION
  Report Type: 
  Country: None (occurrence: None)
  Receive Date: 20101029
  Receipt Date: 20101026
  Transmission Date: 20110411
  Serious: Yes (Hospitalization)
  Sender: FDA-Public Use
  Company Number: US-WYE-H18375210

PATIENT
  Sex: Female
  Weight: 72.64 kg

DRUGS (2)
  1. PREMARIN [Suspect]
     Indication: HYSTERECTOMY
     Dosage: TABLET, UNKNOWN DOSE
     Route: 048
     Dates: end: 20050101
  2. ATENOLOL [Concomitant]
     Indication: HYPERTENSION
     Dosage: UNKNOWN
     Route: 065

REACTIONS (4)
  - ABDOMINAL PAIN LOWER [None]
  - ADNEXA UTERI PAIN [None]
  - PALPITATIONS [None]
  - SKIN DISCOLOURATION [None]
